FAERS Safety Report 6732745-2 (Version None)
Quarter: 2010Q2

REPORT INFORMATION
  Report Type: 
  Country: None (occurrence: None)
  Receive Date: 20100519
  Receipt Date: 20100511
  Transmission Date: 20101027
  Serious: Yes (Death, Other)
  Sender: FDA-Public Use
  Company Number: CN-ELI_LILLY_AND_COMPANY-CN201005002555

PATIENT
  Sex: Male

DRUGS (1)
  1. GEMZAR [Suspect]
     Indication: NON-SMALL CELL LUNG CANCER
     Dosage: 1.8 G, WEEKLY (1/W)
     Route: 042
     Dates: start: 20100426

REACTIONS (3)
  - ACUTE LEFT VENTRICULAR FAILURE [None]
  - CARDIO-RESPIRATORY ARREST [None]
  - GOUT [None]
